FAERS Safety Report 6927940-3 (Version None)
Quarter: 2010Q3

REPORT INFORMATION
  Report Type: 
  Country: None (occurrence: None)
  Receive Date: 20100812
  Receipt Date: 20100727
  Transmission Date: 20110219
  Serious: Yes (Hospitalization, Other)
  Sender: FDA-Public Use
  Company Number: ACO_01021_2010

PATIENT
  Sex: Female
  Weight: 43.0917 kg

DRUGS (13)
  1. AMPYRA [Suspect]
     Indication: MULTIPLE SCLEROSIS
     Dosage: (10 MG BID ORAL)
     Route: 048
     Dates: start: 20100527, end: 20100101
  2. AMITRIPTYLINE (40 MG, 45 MG) [Suspect]
     Indication: PAIN
     Dosage: (40 MG DF), (45 MG DF)
  3. ASCORBIC ACID [Concomitant]
  4. HIPREX [Concomitant]
  5. COLACE [Concomitant]
  6. TYLENOL (CAPLET) [Concomitant]
  7. COPAXONE [Concomitant]
  8. OXYTROL [Concomitant]
  9. UNISOM /00000402/ [Concomitant]
  10. FOSAMAX [Concomitant]
  11. DULCOLAX [Concomitant]
  12. MULTI-VITAMINS [Concomitant]
  13. CALCIUM [Concomitant]

REACTIONS (6)
  - DEPRESSION [None]
  - FALL [None]
  - FATIGUE [None]
  - GRAND MAL CONVULSION [None]
  - HEAD INJURY [None]
  - INSOMNIA [None]
